FAERS Safety Report 19379190 (Version 1)
Quarter: 2021Q2

REPORT INFORMATION
  Report Type: Spontaneous
  Country: US (occurrence: US)
  Receive Date: 20210607
  Receipt Date: 20210607
  Transmission Date: 20210717
  Serious: Yes (Life-Threatening, Hospitalization, Other)
  Sender: FDA-Public Use
  Company Number: US-GLENMARK PHARMACEUTICALS-2021GMK054300

PATIENT
  Age: 72 Year
  Sex: Female

DRUGS (1)
  1. POTASSIUM CHLORIDE. [Suspect]
     Active Substance: POTASSIUM CHLORIDE
     Indication: PRODUCT USED FOR UNKNOWN INDICATION
     Dosage: 1800 MILLIEQUIVALENT, SINGLE (TOTAL)
     Route: 048

REACTIONS (4)
  - Hyperkalaemia [Recovered/Resolved]
  - Intentional overdose [Unknown]
  - Ileus [Recovered/Resolved]
  - Haemodynamic instability [Recovered/Resolved]
